FAERS Safety Report 5731916-1 (Version None)
Quarter: 2008Q2

REPORT INFORMATION
  Report Type: 
  Country: None (occurrence: None)
  Receive Date: 20080506
  Receipt Date: 20080506
  Transmission Date: 20081010
  Serious: Yes (Hospitalization)
  Sender: FDA-Public Use
  Company Number: None

PATIENT
  Age: 50 Year
  Sex: Male
  Weight: 87.5442 kg

DRUGS (14)
  1. SILDENAFIL CITRATE [Suspect]
     Indication: PULMONARY FIBROSIS
     Dosage: 20MG TID, PO
     Route: 048
     Dates: start: 20080206, end: 20080501
  2. DUONEB NEBULIZER [Concomitant]
  3. FLORADIL AEROLIZER INHALER [Concomitant]
  4. SPIRIVA [Concomitant]
  5. CARTIA CD [Concomitant]
  6. ASPIRIN [Concomitant]
  7. GEMFIBROZIL [Concomitant]
  8. CENTRUM SILVER [Concomitant]
  9. FISH OIL [Concomitant]
  10. PROTONIX [Concomitant]
  11. OXYGEN [Concomitant]
  12. IBUPROFEN [Concomitant]
  13. HYDROCORTISONE CREAM [Concomitant]
  14. NASONEX [Concomitant]

REACTIONS (2)
  - CHEST PAIN [None]
  - PNEUMOTHORAX [None]
